FAERS Safety Report 4462320-4 (Version None)
Quarter: 2004Q3

REPORT INFORMATION
  Report Type: 
  Country: None (occurrence: None)
  Receive Date: 20040929
  Receipt Date: 20040922
  Transmission Date: 20050211
  Serious: Yes (Other)
  Sender: FDA-Public Use
  Company Number: PHNR2004AU01449

PATIENT
  Sex: 0
  Weight: 77 kg

DRUGS (2)
  1. CLOZARIL [Suspect]
     Indication: SCHIZOPHRENIA
     Dosage: 200MG/DAILY
     Route: 048
  2. FLUPHENAZINE [Suspect]
     Dosage: 12.5MG/DAILY
     Route: 030
     Dates: start: 19820101, end: 19930101

REACTIONS (2)
  - CATARACT [None]
  - TARDIVE DYSKINESIA [None]
